FAERS Safety Report 11308235 (Version 3)
Quarter: 2017Q2

REPORT INFORMATION
  Report Type: Spontaneous
  Country: US (occurrence: US)
  Receive Date: 20150724
  Receipt Date: 20170508
  Transmission Date: 20170829
  Serious: No
  Sender: FDA-Public Use
  Company Number: US-ASTRAZENECA-2015SE68554

PATIENT
  Sex: Female

DRUGS (2)
  1. SPIRIVA [Concomitant]
     Active Substance: TIOTROPIUM BROMIDE MONOHYDRATE
  2. TUDORZA PRESSAIR [Suspect]
     Active Substance: ACLIDINIUM BROMIDE
     Indication: CHRONIC OBSTRUCTIVE PULMONARY DISEASE
     Dosage: 400 MCG, ONE PUFF TWICE DAILY
     Route: 055
     Dates: start: 201402

REACTIONS (5)
  - Product quality issue [Unknown]
  - Intentional product misuse [Unknown]
  - Dyspnoea [Unknown]
  - Panic reaction [Unknown]
  - Drug dose omission [Unknown]
